FAERS Safety Report 7737077-1 (Version None)
Quarter: 2011Q3

REPORT INFORMATION
  Report Type: 
  Country: None (occurrence: None)
  Receive Date: 20110902
  Receipt Date: 20110824
  Transmission Date: 20111222
  Serious: Yes (Other)
  Sender: FDA-Public Use
  Company Number: 2011MA012557

PATIENT
  Age: 7 Year
  Sex: Female

DRUGS (1)
  1. SERTRALINE HYDROCHLORIDE [Suspect]
     Indication: ANXIETY DISORDER
     Dosage: 25 MG
     Dates: start: 20070101, end: 20080201

REACTIONS (4)
  - VASODILATATION [None]
  - PAPILLOEDEMA [None]
  - BENIGN INTRACRANIAL HYPERTENSION [None]
  - HYPERMETROPIA [None]
